FAERS Safety Report 25978316 (Version 1)
Quarter: 2025Q4

REPORT INFORMATION
  Report Type: Spontaneous
  Country: EU (occurrence: EU)
  Receive Date: 20251030
  Receipt Date: 20251030
  Transmission Date: 20260117
  Serious: Yes (Disabling)
  Sender: TAKEDA
  Company Number: None

PATIENT
  Age: 31 Year
  Sex: Female

DRUGS (2)
  1. LISDEXAMFETAMINE DIMESYLATE [Suspect]
     Active Substance: LISDEXAMFETAMINE DIMESYLATE
     Indication: Attention deficit hyperactivity disorder
     Dosage: 70 MILLIGRAM, QD
     Dates: start: 2024
  2. ALPRAZOLAM [Concomitant]
     Active Substance: ALPRAZOLAM
     Indication: Anxiety
     Dosage: 1 MILLIGRAM, QD
     Dates: start: 2020

REACTIONS (7)
  - Headache [Unknown]
  - Irritability [Unknown]
  - Depressed mood [Unknown]
  - Drug effect less than expected [Unknown]
  - Product physical consistency issue [Unknown]
  - Therapeutic response shortened [Unknown]
  - Feeling abnormal [Unknown]

NARRATIVE: CASE EVENT DATE: 20250930
